FAERS Safety Report 18476226 (Version 1)
Quarter: 2020Q4

REPORT INFORMATION
  Report Type: Spontaneous
  Country: US (occurrence: US)
  Receive Date: 20201106
  Receipt Date: 20201106
  Transmission Date: 20210114
  Serious: No
  Sender: FDA-Public Use
  Company Number: US-PFIZER INC-2020429081

PATIENT
  Age: 52 Year
  Sex: Male
  Weight: 127.91 kg

DRUGS (8)
  1. SILDENAFIL CITRATE. [Suspect]
     Active Substance: SILDENAFIL CITRATE
     Indication: ERECTILE DYSFUNCTION
     Dosage: 20 MG, AS NEEDED
     Route: 048
     Dates: start: 2018
  2. SILDENAFIL CITRATE. [Suspect]
     Active Substance: SILDENAFIL CITRATE
     Dosage: 100 MG(HE TYPICALLY TAKES 5 AT A TIME FOR A TOTAL OF 100MG)
     Route: 048
  3. SILDENAFIL CITRATE. [Suspect]
     Active Substance: SILDENAFIL CITRATE
     Dosage: 160 MG, AS NEEDED (8 TABLET)
  4. DULERA [Concomitant]
     Active Substance: FORMOTEROL FUMARATE DIHYDRATE\MOMETASONE FUROATE
     Indication: CHRONIC OBSTRUCTIVE PULMONARY DISEASE
     Dosage: UNK(2 PUFFS IN THE MORNING WITH A CHAMBER)
  5. DILTIAZEM XR [Concomitant]
     Active Substance: DILTIAZEM
     Indication: BLOOD PRESSURE ABNORMAL
     Dosage: 240 MG, 1X/DAY
     Route: 048
  6. VICODIN [Concomitant]
     Active Substance: ACETAMINOPHEN\HYDROCODONE BITARTRATE
     Indication: BACK INJURY
     Dosage: UNK, DAILY(TWO, 5-325MG TABLETS, BY MOUTH, A DAY)
     Route: 048
  7. METOPROLOL. [Concomitant]
     Active Substance: METOPROLOL
     Indication: BLOOD PRESSURE ABNORMAL
     Dosage: 25 MG, 2X/DAY(IN THE MORNING AND AFTERNOON)
  8. METOPROLOL. [Concomitant]
     Active Substance: METOPROLOL
     Dosage: UNK(50MG TABLET HE TAKES ONCE IN THE MORNING AND LASTS HIM THROUGHOUT THE DAY.)

REACTIONS (2)
  - Intentional overdose [Unknown]
  - Drug ineffective [Unknown]
